FAERS Safety Report 5307012-4 (Version None)
Quarter: 2007Q2

REPORT INFORMATION
  Report Type: 
  Country: None (occurrence: None)
  Receive Date: 20070419
  Receipt Date: 20070417
  Transmission Date: 20071010
  Serious: Yes (Hospitalization)
  Sender: FDA-Public Use
  Company Number: LTI2007A00100

PATIENT
  Age: 74 Year
  Sex: Male

DRUGS (9)
  1. LANSOPRAZOLE [Suspect]
     Dosage: 60 MG (30 MG, 2 IN 1 D), ORAL
     Route: 048
  2. XANAX [Suspect]
     Indication: ANXIETY
     Dosage: 1 MG (0.5 MG, 2 IN 1 D), ORAL
     Route: 048
  3. GLIMEPIRIDE [Suspect]
     Indication: DIABETES MELLITUS NON-INSULIN-DEPENDENT
     Dosage: 1 DF (1 DF, 1 IN 1 D), ORAL
     Route: 048
  4. GLUCOPHAGE [Suspect]
     Indication: DIABETES MELLITUS NON-INSULIN-DEPENDENT
     Dosage: 1700 MG (850 MG , 2 IN 1 D), ORAL
     Route: 048
  5. FENOFIBRATE [Suspect]
     Indication: HYPERLIPIDAEMIA
     Dosage: 200 MG (200 MG, 1 IN 1 D), ORAL
     Route: 047
  6. ANAFRANIL [Suspect]
     Indication: DEPRESSION
     Dosage: 50 MG (25 MG, 2 IN 1 D), ORAL
     Route: 048
  7. URBANYL (CLOBAZAM) (TABLETS) [Concomitant]
  8. TRANSIPEG (MACROGOL) (POWDER) [Concomitant]
  9. KARDEGIC (ACETYLSALICYLATE LYSINE) (POWDER) [Concomitant]

REACTIONS (7)
  - ACANTHOSIS [None]
  - ANAEMIA [None]
  - BETA 2 MICROGLOBULIN INCREASED [None]
  - ECZEMA [None]
  - HYPERKERATOSIS [None]
  - LICHENIFICATION [None]
  - PRURIGO [None]
